FAERS Safety Report 25681283 (Version 1)
Quarter: 2025Q3

REPORT INFORMATION
  Report Type: Other
  Country: CN (occurrence: CN)
  Receive Date: 20250814
  Receipt Date: 20250814
  Transmission Date: 20251020
  Serious: Yes (Other)
  Sender: SPECTRA MEDICAL DEVICES, LLC
  Company Number: CN-Spectra Medical Devices, LLC-2182479

PATIENT
  Age: 68 Year
  Sex: Female
  Weight: 41 kg

DRUGS (4)
  1. LIDOCAINE HYDROCHLORIDE [Suspect]
     Active Substance: LIDOCAINE HYDROCHLORIDE
     Indication: Local anaesthesia
  2. ROPIVACAINE [Suspect]
     Active Substance: ROPIVACAINE
  3. OXYGEN [Concomitant]
     Active Substance: OXYGEN
  4. SALINE [Concomitant]
     Active Substance: SODIUM CHLORIDE

REACTIONS (4)
  - Local anaesthetic systemic toxicity [Recovered/Resolved]
  - Neurotoxicity [Recovered/Resolved]
  - Loss of consciousness [Recovered/Resolved]
  - Unresponsive to stimuli [Recovered/Resolved]
